FAERS Safety Report 7080135-8 (Version None)
Quarter: 2010Q4

REPORT INFORMATION
  Report Type: 
  Country: None (occurrence: None)
  Receive Date: 20101102
  Receipt Date: 20101025
  Transmission Date: 20110411
  Serious: Yes (Life-Threatening, Hospitalization)
  Sender: FDA-Public Use
  Company Number: FR-BRISTOL-MYERS SQUIBB COMPANY-15340854

PATIENT
  Age: 53 Year
  Sex: Male
  Weight: 145 kg

DRUGS (9)
  1. GLUCOPHAGE [Suspect]
     Indication: DIABETES MELLITUS
     Route: 048
     Dates: end: 20100423
  2. COLCHIMAX [Suspect]
     Dosage: 1DF(1DF,1IN1D) UNK-12APR10 2DF(2DF,1IN1D) 12APR10-22APR10(10D)
     Route: 048
     Dates: end: 20100422
  3. ASPEGIC 1000 [Suspect]
     Route: 048
     Dates: end: 20100423
  4. OLMETEC [Suspect]
     Indication: HYPERTENSION
     Dosage: 40MG TABLET
     Route: 048
     Dates: end: 20100423
  5. ALDALIX [Suspect]
     Indication: HYPERTENSION
     Dosage: CAP 50MG/20MG
     Route: 048
     Dates: end: 20100423
  6. FUROSEMIDE [Suspect]
     Indication: HYPERTENSION
     Route: 048
     Dates: end: 20100427
  7. VOLTAREN [Suspect]
     Indication: PAIN
     Dosage: 75MG/3ML
     Route: 030
     Dates: start: 20100415, end: 20100422
  8. HUMALOG [Concomitant]
     Indication: DIABETES MELLITUS
     Route: 058
     Dates: end: 20100423
  9. LANTUS [Concomitant]
     Indication: DIABETES MELLITUS
     Route: 058
     Dates: end: 20100423

REACTIONS (4)
  - DIARRHOEA [None]
  - NEUROPATHY PERIPHERAL [None]
  - RENAL FAILURE ACUTE [None]
  - VOMITING [None]
